FAERS Safety Report 20866902 (Version 1)
Quarter: 2022Q2

REPORT INFORMATION
  Report Type: Spontaneous
  Country: US (occurrence: US)
  Receive Date: 20220524
  Receipt Date: 20220524
  Transmission Date: 20220721
  Serious: Yes (Other)
  Sender: FDA-Public Use
  Company Number: US-BRISTOL-MYERS SQUIBB COMPANY-2022-039941

PATIENT
  Age: 77 Year
  Sex: Male

DRUGS (2)
  1. POMALYST [Suspect]
     Active Substance: POMALIDOMIDE
     Indication: Plasma cell myeloma
     Dosage: TAKE 1 CAPSULE BY MOUTH DAILY FOR 221 DAYS THEN 7 DAYS OFF REPEAT EVERY 28 DAYS
     Route: 048
     Dates: start: 20210723
  2. POMALYST [Suspect]
     Active Substance: POMALIDOMIDE
     Dosage: TAKE 1 CAPSULE BY MOUTH DAILY FOR 221 DAYS THEN 7 DAYS OFF REPEAT EVERY 28 DAYS
     Route: 048

REACTIONS (4)
  - Neutropenia [Unknown]
  - Fatigue [Unknown]
  - Poor quality sleep [Unknown]
  - Constipation [Unknown]
